FAERS Safety Report 15340420 (Version 1)
Quarter: 2018Q3

REPORT INFORMATION
  Report Type: Spontaneous
  Country: US (occurrence: US)
  Receive Date: 20180827
  Receipt Date: 20180827
  Transmission Date: 20181010
  Serious: Yes (Hospitalization)
  Sender: FDA-Public Use
  Company Number: None

PATIENT
  Age: 58 Year
  Sex: Female

DRUGS (1)
  1. JULUCA [Suspect]
     Active Substance: DOLUTEGRAVIR SODIUM\RILPIVIRINE HYDROCHLORIDE
     Indication: HIV INFECTION
     Route: 048
     Dates: start: 201805

REACTIONS (6)
  - Diarrhoea [None]
  - Breast disorder [None]
  - Breast cancer [None]
  - Renal failure [None]
  - Inflammation [None]
  - Food poisoning [None]

NARRATIVE: CASE EVENT DATE: 20180803
